FAERS Safety Report 17993792 (Version 1)
Quarter: 2020Q3

REPORT INFORMATION
  Report Type: Spontaneous
  Country: US (occurrence: US)
  Receive Date: 20200707
  Receipt Date: 20200707
  Transmission Date: 20201103
  Serious: Yes (Other)
  Sender: FDA-Public Use
  Company Number: None

PATIENT
  Age: 65 Year
  Sex: Female
  Weight: 72 kg

DRUGS (17)
  1. VITAMIN B COMPLEX [Concomitant]
     Active Substance: CYANOCOBALAMIN\DEXPANTHENOL\NIACINAMIDE\PYRIDOXINE HYDROCHLORIDE\RIBOFLAVIN 5^-PHOSPHATE SODIUM\THIAMINE HYDROCHLORIDE\VITAMIN B COMPLEX
  2. PANTOPRAZOLE [Concomitant]
     Active Substance: PANTOPRAZOLE
  3. VITAMIN D [Concomitant]
     Active Substance: VITAMIN D NOS
  4. VITAMIN E [Concomitant]
     Active Substance: .ALPHA.-TOCOPHEROL
  5. MAGNESIUM [Concomitant]
     Active Substance: MAGNESIUM
  6. METOPROLOL. [Concomitant]
     Active Substance: METOPROLOL
  7. VITAMIN C [Concomitant]
     Active Substance: ASCORBIC ACID
  8. FISH OIL [Concomitant]
     Active Substance: FISH OIL
  9. SELENIUM [Concomitant]
     Active Substance: SELENIUM
  10. MULTI VITAMIN [Concomitant]
     Active Substance: VITAMINS
  11. ZINC. [Concomitant]
     Active Substance: ZINC
  12. CALCIUM [Concomitant]
     Active Substance: CALCIUM
  13. PEPCID AC [Concomitant]
     Active Substance: FAMOTIDINE
  14. GARLIC. [Concomitant]
     Active Substance: GARLIC
  15. COD LIVER OIL [Concomitant]
     Active Substance: COD LIVER OIL
  16. METFORMIN [Suspect]
     Active Substance: METFORMIN HYDROCHLORIDE
     Indication: BLOOD CHOLESTEROL
     Dosage: ?          QUANTITY:1 TABLET(S);?
     Route: 048
     Dates: start: 20200601, end: 20200619
  17. ATORVASTATIN [Concomitant]
     Active Substance: ATORVASTATIN

REACTIONS (2)
  - Feeling abnormal [None]
  - Product quality issue [None]

NARRATIVE: CASE EVENT DATE: 20200601
